FAERS Safety Report 21343257 (Version 1)
Quarter: 2022Q3

REPORT INFORMATION
  Report Type: Spontaneous
  Country: ES (occurrence: ES)
  Receive Date: 20220916
  Receipt Date: 20220916
  Transmission Date: 20221027
  Serious: Yes (Other)
  Sender: FDA-Public Use
  Company Number: ES-ARISTO PHARMA-ATOR202207251

PATIENT
  Age: 42 Year
  Sex: Female

DRUGS (1)
  1. ATORVASTATIN [Suspect]
     Active Substance: ATORVASTATIN
     Indication: Hypercholesterolaemia
     Dosage: 20 MG EVERY 24 HOURS
     Route: 065

REACTIONS (3)
  - Dermatomyositis [Not Recovered/Not Resolved]
  - Necrotising myositis [Unknown]
  - Immune-mediated myositis [Recovering/Resolving]
